FAERS Safety Report 7300012-4 (Version None)
Quarter: 2011Q1

REPORT INFORMATION
  Report Type: 
  Country: None (occurrence: None)
  Receive Date: 20110217
  Receipt Date: 20110214
  Transmission Date: 20110831
  Serious: Yes (Other)
  Sender: FDA-Public Use
  Company Number: BR-PFIZER INC-2011032461

PATIENT
  Age: 70 Year
  Sex: Male

DRUGS (13)
  1. FRONTAL [Concomitant]
     Indication: ANXIETY
     Dosage: UNK
  2. SEROQUEL [Concomitant]
     Indication: NERVOUSNESS
     Dosage: UNK
     Dates: start: 20101101
  3. NEUTROFER [Concomitant]
     Dosage: UNK
     Dates: start: 20101201
  4. AMARYL [Concomitant]
     Indication: DIABETES MELLITUS
     Dosage: 1 MG, 3X/DAY
  5. PRANDIN [Concomitant]
     Indication: DIABETES MELLITUS
     Dosage: 1 MG, 2X/DAY
  6. PANTOPRAZOLE [Concomitant]
     Dosage: UNK
     Dates: start: 20080101
  7. LYRICA [Suspect]
     Indication: NEUROPATHY PERIPHERAL
     Dosage: 75 MG, 1X/DAY
     Route: 048
     Dates: start: 20100101
  8. ARTROLIVE [Concomitant]
     Indication: OSTEOARTHRITIS
     Dosage: UNK
     Dates: start: 20100101
  9. LISADOR [Concomitant]
  10. CITONEURIN [Concomitant]
     Indication: NERVE INJURY
     Dosage: UNK
     Dates: start: 20101101
  11. COUMADIN [Concomitant]
     Indication: CARDIOVASCULAR DISORDER
     Dosage: UNK
  12. LYRICA [Suspect]
     Indication: RELAXATION THERAPY
  13. METFORMIN HYDROCHLORIDE [Concomitant]
     Indication: DIABETES MELLITUS
     Dosage: 850 MG, 2X/DAY

REACTIONS (3)
  - THROMBOSIS [None]
  - EYE SWELLING [None]
  - WEIGHT INCREASED [None]
